FAERS Safety Report 16708705 (Version 8)
Quarter: 2022Q4

REPORT INFORMATION
  Report Type: Report from Study
  Country: JP (occurrence: JP)
  Receive Date: 20190816
  Receipt Date: 20221125
  Transmission Date: 20230112
  Serious: Yes (Hospitalization, Other)
  Sender: FDA-Public Use
  Company Number: JP-ASTELLAS-2019JP017433

PATIENT
  Age: 82 Year
  Sex: Female
  Weight: 33 kg

DRUGS (24)
  1. GILTERITINIB [Suspect]
     Active Substance: GILTERITINIB
     Indication: Acute myeloid leukaemia refractory
     Route: 048
     Dates: start: 20190604, end: 20190609
  2. GILTERITINIB [Suspect]
     Active Substance: GILTERITINIB
     Route: 048
     Dates: start: 20190610
  3. GILTERITINIB [Suspect]
     Active Substance: GILTERITINIB
     Dosage: 160 MG/DAY, UNKNOWN FREQ.
     Route: 065
  4. TOSUFLOXACIN TOSYLATE [Concomitant]
     Active Substance: TOSUFLOXACIN TOSYLATE
     Indication: Product used for unknown indication
     Dosage: UNK UNK, UNKNOWN FREQ.
     Route: 048
  5. NEXIUM [Concomitant]
     Active Substance: ESOMEPRAZOLE MAGNESIUM
     Indication: Product used for unknown indication
     Dosage: UNK UNK, UNKNOWN FREQ.
     Route: 048
  6. SULFAMETHOXAZOLE\TRIMETHOPRIM [Concomitant]
     Active Substance: SULFAMETHOXAZOLE\TRIMETHOPRIM
     Indication: Product used for unknown indication
     Dosage: UNK UNK, UNKNOWN FREQ.
     Route: 048
  7. FLUCONAZOLE [Concomitant]
     Active Substance: FLUCONAZOLE
     Indication: Prophylaxis
     Dosage: 100 MG/DAY, UNKNOWN FREQ.
     Route: 048
  8. CEFOZOPRAN HYDROCHLORIDE [Concomitant]
     Active Substance: CEFOZOPRAN HYDROCHLORIDE
     Indication: Pneumonia
     Dosage: 1 G/DAY, UNKNOWN FREQ.
     Route: 065
  9. CEFOZOPRAN HYDROCHLORIDE [Concomitant]
     Active Substance: CEFOZOPRAN HYDROCHLORIDE
     Indication: Febrile neutropenia
     Dosage: UNK UNK, UNKNOWN FREQ.
     Route: 065
  10. FAMOTIDINE [Concomitant]
     Active Substance: FAMOTIDINE
     Indication: Prophylaxis
     Dosage: 10 MG/DAY, UNKNOWN FREQ.
     Route: 048
  11. HUMAN RED BLOOD CELL [Concomitant]
     Active Substance: HUMAN RED BLOOD CELL
     Indication: Acute myeloid leukaemia refractory
     Dosage: 2 IU/DAY, UNKNOWN FREQ.
     Route: 065
  12. HUMAN RED BLOOD CELL [Concomitant]
     Active Substance: HUMAN RED BLOOD CELL
     Indication: Tumour lysis syndrome
  13. HUMAN RED BLOOD CELL [Concomitant]
     Active Substance: HUMAN RED BLOOD CELL
     Indication: Disseminated intravascular coagulation
  14. FEBUXOSTAT [Concomitant]
     Active Substance: FEBUXOSTAT
     Indication: Hyperuricaemia
     Dosage: 20 MG/DAY, UNKNOWN FREQ.
     Route: 048
  15. FEBUXOSTAT [Concomitant]
     Active Substance: FEBUXOSTAT
     Indication: Tumour lysis syndrome
     Dosage: 60 MG/DAY, UNKNOWN FREQ.
     Route: 048
     Dates: start: 20200606
  16. POTASSIUM ASPARTATE [Concomitant]
     Active Substance: POTASSIUM ASPARTATE
     Indication: Hypokalaemia
     Dosage: 2700 MG/DAY, UNKNOWN FREQ.
     Route: 048
  17. BISOPROLOL FUMARATE [Concomitant]
     Active Substance: BISOPROLOL FUMARATE
     Indication: Hypertension
     Dosage: 2.5 MG/DAY, UNKNOWN FREQ.
     Route: 048
  18. FUROSEMIDE [Concomitant]
     Active Substance: FUROSEMIDE
     Indication: Tumour lysis syndrome
     Dosage: 40 MG/DAY, UNKNOWN FREQ.
     Route: 065
     Dates: start: 20190606
  19. FUROSEMIDE [Concomitant]
     Active Substance: FUROSEMIDE
     Indication: Pleural effusion
  20. ISOTONIC SODIUM CHLORIDE SOLUTION [Concomitant]
     Active Substance: SODIUM CHLORIDE
     Indication: Tumour lysis syndrome
     Dosage: 1500 ML/DAY, UNKNOWN FREQ.
     Route: 065
     Dates: start: 20190606, end: 20190609
  21. ACOALAN [Concomitant]
     Indication: Disseminated intravascular coagulation
     Dosage: UNK UNK, UNKNOWN FREQ.
     Route: 065
  22. ORGARAN [Concomitant]
     Active Substance: DANAPAROID SODIUM
     Indication: Disseminated intravascular coagulation
     Dosage: UNK UNK, UNKNOWN FREQ.
     Route: 065
  23. SPIRONOLACTONE [Concomitant]
     Active Substance: SPIRONOLACTONE
     Indication: Pleural effusion
     Dosage: UNK UNK, UNKNOWN FREQ.
     Route: 065
  24. ALBUMIN HUMAN [Concomitant]
     Active Substance: ALBUMIN HUMAN
     Indication: Pleural effusion
     Dosage: UNK UNK, UNKNOWN FREQ.
     Route: 065

REACTIONS (8)
  - Tumour lysis syndrome [Recovering/Resolving]
  - Febrile neutropenia [Recovering/Resolving]
  - Anaemia [Recovering/Resolving]
  - Fall [Recovering/Resolving]
  - Head injury [Recovering/Resolving]
  - Disseminated intravascular coagulation [Recovering/Resolving]
  - Retinopathy [Recovering/Resolving]
  - Pleural effusion [Recovering/Resolving]

NARRATIVE: CASE EVENT DATE: 20190606
